FAERS Safety Report 7360672-9 (Version None)
Quarter: 2011Q1

REPORT INFORMATION
  Report Type: 
  Country: None (occurrence: None)
  Receive Date: 20110315
  Receipt Date: 20110315
  Transmission Date: 20110831
  Serious: No
  Sender: FDA-Public Use
  Company Number: None

PATIENT
  Age: 28 Year
  Sex: Male
  Weight: 106.5953 kg

DRUGS (2)
  1. STRATTERA [Suspect]
     Indication: FATIGUE
     Dosage: 1 PILL PER DAY PO
     Route: 048
     Dates: start: 20101001, end: 20101003
  2. STRATTERA [Suspect]
     Indication: DISTURBANCE IN ATTENTION
     Dosage: 1 PILL PER DAY PO
     Route: 048
     Dates: start: 20101001, end: 20101003

REACTIONS (16)
  - IMPAIRED WORK ABILITY [None]
  - THINKING ABNORMAL [None]
  - PARAESTHESIA [None]
  - EMOTIONAL DISORDER [None]
  - NERVOUSNESS [None]
  - DEPRESSED MOOD [None]
  - HEADACHE [None]
  - CHROMATURIA [None]
  - HOT FLUSH [None]
  - PILOERECTION [None]
  - FATIGUE [None]
  - ABNORMAL SENSATION IN EYE [None]
  - FEELING COLD [None]
  - DYSURIA [None]
  - AGITATION [None]
  - FEELING JITTERY [None]
